FAERS Safety Report 17071692 (Version 1)
Quarter: 2019Q4

REPORT INFORMATION
  Report Type: Spontaneous
  Country: IT (occurrence: IT)
  Receive Date: 20191125
  Receipt Date: 20191125
  Transmission Date: 20200122
  Serious: Yes (Other)
  Sender: FDA-Public Use
  Company Number: IT-MYLANLABS-2019M1112870

PATIENT
  Age: 34 Year
  Sex: Female

DRUGS (11)
  1. ASA [Concomitant]
     Active Substance: ASPIRIN
     Dosage: 250 MILLIGRAM
     Route: 042
  2. TICLOPIDINE [Concomitant]
     Active Substance: TICLOPIDINE
     Dosage: UNK
  3. ENOXAPARINE SODIQUE [Concomitant]
     Active Substance: ENOXAPARIN SODIUM
     Dosage: ^WAS ADMINISTERED ONE HOUR BEFORE SURGERY AND REPEATED ONCE A DAY FOR FIVE DAYS ^^C-SECTION^
  4. WARFARIN [Concomitant]
     Active Substance: WARFARIN
     Dosage: INR TARGET 2.5
     Route: 065
  5. BETAMETHASONE ACETATE [Concomitant]
     Active Substance: BETAMETHASONE ACETATE
     Dosage: BETAMETASONE ACETATE (3 MG) PLUS BETAMETASONE PHOSPHATE (3.945 MG) TWICE AT 24H
     Route: 065
  6. HEPARIN [Concomitant]
     Active Substance: HEPARIN SODIUM
     Dosage: UNK
     Route: 042
  7. BETAMETASON [Concomitant]
     Dosage: BETAMETASONE ACETATE (3 MG),BETAMETASONE PHOSPHATE (3.945 MG) TWICE AT 24H
     Route: 065
  8. CARVEDILOL. [Suspect]
     Active Substance: CARVEDILOL
     Indication: MYOCARDIAL INFARCTION
     Dosage: 12.5 MILLIGRAM, QD
     Route: 065
  9. LISINOPRIL. [Concomitant]
     Active Substance: LISINOPRIL
     Dosage: UNK
     Route: 065
  10. FUROSEMIDE. [Concomitant]
     Active Substance: FUROSEMIDE
     Dosage: UNK
     Route: 065
  11. ATENOLOL. [Concomitant]
     Active Substance: ATENOLOL
     Dosage: UNK
     Route: 042

REACTIONS (3)
  - Cardiac ventricular thrombosis [Recovered/Resolved]
  - Maternal exposure during pregnancy [Recovered/Resolved]
  - Congestive cardiomyopathy [Unknown]
